FAERS Safety Report 5688133-3 (Version None)
Quarter: 2008Q1

REPORT INFORMATION
  Report Type: 
  Country: None (occurrence: None)
  Receive Date: 20080327
  Receipt Date: 20080313
  Transmission Date: 20080703
  Serious: Yes (Other)
  Sender: FDA-Public Use
  Company Number: S08-FRA-01142-01

PATIENT
  Age: 50 Year
  Sex: Female

DRUGS (8)
  1. ESCITALOPRAM [Suspect]
     Dates: start: 20080201, end: 20080304
  2. ESCITALOPRAM [Suspect]
     Dates: start: 20080312, end: 20080313
  3. CITALOPRAM HYDROBROMIDE [Suspect]
     Dates: start: 20080304, end: 20080312
  4. EQUANIL [Suspect]
     Dates: start: 20080304, end: 20080313
  5. EUTHYRAL [Concomitant]
  6. MIRTAZAPINE [Concomitant]
  7. ATARAX [Concomitant]
  8. TERCIAN           (CYAMEMAZINE) [Concomitant]

REACTIONS (1)
  - HEPATITIS [None]
